FAERS Safety Report 8915239 (Version 2)
Quarter: 2013Q1

REPORT INFORMATION
  Report Type: Spontaneous
  Country: US (occurrence: US)
  Receive Date: 20121119
  Receipt Date: 20130121
  Transmission Date: 20140127
  Serious: No
  Sender: FDA-Public Use
  Company Number: US-PFIZER INC-2012285834

PATIENT
  Age: 65 Year
  Sex: Male
  Weight: 84 kg

DRUGS (6)
  1. TIKOSYN [Suspect]
     Indication: ATRIAL FIBRILLATION
     Dosage: 0.5 MG, 2X/DAY
     Route: 048
     Dates: start: 20121105
  2. COUMADINE [Concomitant]
     Dosage: UNK
     Dates: start: 20121027
  3. MAGNESIUM [Concomitant]
     Dosage: 400 MG, 1X/DAY
  4. AMLODIPINE [Concomitant]
     Indication: HYPERTENSION
     Dosage: 10 MG, 1X/DAY
  5. LIPITOR [Concomitant]
     Dosage: 10 MG, 1X/DAY
  6. ASPIRIN [Concomitant]
     Dosage: 81 MG, 1X/DAY

REACTIONS (5)
  - Limb discomfort [Recovered/Resolved]
  - Pain in extremity [Recovered/Resolved]
  - Arthralgia [Recovered/Resolved]
  - Hepatic enzyme increased [Unknown]
  - Aspartate aminotransferase increased [Unknown]
